FAERS Safety Report 8756704 (Version 3)
Quarter: 2012Q4

REPORT INFORMATION
  Report Type: 
  Country: JP (occurrence: JP)
  Receive Date: 20120828
  Receipt Date: 20120926
  Transmission Date: 20130627
  Serious: Yes (Hospitalization)
  Sender: FDA-Public Use
  Company Number: PHHY2012JP073678

PATIENT
  Age: 9 Month
  Sex: Male

DRUGS (2)
  1. TEGRETOL [Suspect]
     Indication: EPILEPSY
     Dosage: 33 mg, daily
     Route: 048
     Dates: start: 201208, end: 201208
  2. TEGRETOL [Suspect]
     Dosage: 330 mg, daily
     Route: 048

REACTIONS (4)
  - Drug dispensing error [Recovered/Resolved]
  - Overdose [Recovered/Resolved]
  - Sudden onset of sleep [Recovered/Resolved]
  - Anticonvulsant drug level above therapeutic [Unknown]
